FAERS Safety Report 26087893 (Version 3)
Quarter: 2025Q4

REPORT INFORMATION
  Report Type: Spontaneous
  Country: US (occurrence: US)
  Receive Date: 20251125
  Receipt Date: 20251201
  Transmission Date: 20260117
  Serious: Yes (Other)
  Sender: ABBVIE
  Company Number: US-ABBVIE-6562663

PATIENT
  Sex: Male

DRUGS (1)
  1. FLUOROMETHOLONE [Suspect]
     Active Substance: FLUOROMETHOLONE
     Indication: Corneal transplant
     Route: 047

REACTIONS (4)
  - Blindness unilateral [Unknown]
  - Product packaging quantity issue [Unknown]
  - Off label use [Unknown]
  - Glaucoma [Unknown]
